FAERS Safety Report 5337662-0 (Version None)
Quarter: 2007Q2

REPORT INFORMATION
  Report Type: 
  Country: None (occurrence: None)
  Receive Date: 20070315
  Receipt Date: 20060612
  Transmission Date: 20071010
  Serious: Yes (Hospitalization)
  Sender: FDA-Public Use
  Company Number: PHEH2006US07678

PATIENT
  Sex: Male
  Weight: 79.4 kg

DRUGS (1)
  1. TRILEPTAL [Suspect]
     Indication: TONIC CONVULSION
     Dosage: 900 MG, BID, ORAL
     Route: 048
     Dates: start: 20020515

REACTIONS (1)
  - HYPONATRAEMIA [None]
